FAERS Safety Report 6213931-7 (Version None)
Quarter: 2009Q2

REPORT INFORMATION
  Report Type: 
  Country: None (occurrence: None)
  Receive Date: 20090602
  Receipt Date: 20090519
  Transmission Date: 20091009
  Serious: No
  Sender: FDA-Public Use
  Company Number: 2009-197143-NL

PATIENT
  Age: 28 Year

DRUGS (1)
  1. ETONOGESTREL [Suspect]
     Dosage: DF
     Dates: start: 20030101

REACTIONS (4)
  - DEVICE MIGRATION [None]
  - IATROGENIC INJURY [None]
  - PROCEDURAL COMPLICATION [None]
  - ULNAR NERVE INJURY [None]
